FAERS Safety Report 25836262 (Version 1)
Quarter: 2025Q3

REPORT INFORMATION
  Report Type: Spontaneous
  Country: US (occurrence: None)
  Receive Date: 20250922
  Receipt Date: 20250922
  Transmission Date: 20251020
  Serious: Yes (Hospitalization)
  Sender: FDA-CTU
  Company Number: None

PATIENT
  Age: 78 Year
  Sex: Female
  Weight: 38.1 kg

DRUGS (14)
  1. DUPIXENT [Suspect]
     Active Substance: DUPILUMAB
     Indication: Dermatitis atopic
     Dosage: 300 MG EVERY OTHER WEEK SUBCUTANEOUS?
     Route: 058
     Dates: start: 20220609
  2. SYMBICORT 80/4.5MCG (120 ORAL INH) [Concomitant]
  3. ALBUTEROL HFA INH (200 PUFFS) 18GM [Concomitant]
  4. ALENDRONATE [Concomitant]
     Active Substance: ALENDRONATE SODIUM
  5. NIFEDIPINE [Concomitant]
     Active Substance: NIFEDIPINE
  6. OMEPRAZOLE [Concomitant]
     Active Substance: OMEPRAZOLE
  7. POTASSIUM CL 20MEQ ER TABLETS [Concomitant]
  8. PREGABALIN [Concomitant]
     Active Substance: PREGABALIN
  9. VITAMIN E 1000IU CAPSULES [Concomitant]
  10. AMITRIPTYLINE 50MG TABLETS [Concomitant]
  11. ATORVASTATIN [Concomitant]
     Active Substance: ATORVASTATIN
  12. DULOXETINE [Concomitant]
     Active Substance: DULOXETINE
  13. LORAZEPAM [Concomitant]
     Active Substance: LORAZEPAM
  14. VITAMIN D 1,000IU H/PTNCY CAPSULES [Concomitant]

REACTIONS (5)
  - Therapy interrupted [None]
  - Asthenia [None]
  - Dyspnoea [None]
  - Dehydration [None]
  - Angiopathy [None]

NARRATIVE: CASE EVENT DATE: 20250915
